FAERS Safety Report 6010017-1 (Version None)
Quarter: 2008Q4

REPORT INFORMATION
  Report Type: 
  Country: None (occurrence: None)
  Receive Date: 20081218
  Receipt Date: 20081205
  Transmission Date: 20090506
  Serious: Yes (Death, Hospitalization)
  Sender: FDA-Public Use
  Company Number: TW-PFIZER INC-2008152819

PATIENT

DRUGS (11)
  1. BLINDED *PLACEBO [Suspect]
     Indication: PAIN MANAGEMENT
     Dosage: UNK
     Route: 048
     Dates: start: 20080201, end: 20081114
  2. CELECOXIB [Suspect]
     Indication: PAIN MANAGEMENT
     Dosage: UNK
     Route: 048
     Dates: start: 20080201, end: 20081114
  3. BLINDED IBUPROFEN [Suspect]
     Indication: PAIN MANAGEMENT
     Dosage: UNK
     Route: 048
     Dates: start: 20080201, end: 20081114
  4. BLINDED NAPROXEN [Suspect]
     Indication: PAIN MANAGEMENT
     Dosage: UNK
     Route: 048
     Dates: start: 20080201, end: 20081114
  5. METHYLPREDNISOLONE [Concomitant]
     Dosage: UNK
     Route: 048
     Dates: start: 20061107
  6. LEFLUNOMIDE [Concomitant]
     Dosage: UNK
     Route: 048
     Dates: start: 20060825
  7. FELODIPINE [Concomitant]
     Dosage: UNK
     Route: 048
     Dates: start: 20070824
  8. FERRIC SODIUM CITRATE [Concomitant]
     Dosage: UNK
     Route: 048
     Dates: start: 20080229
  9. ZOLPIDEM [Concomitant]
     Dosage: UNK
     Route: 048
     Dates: start: 20080411
  10. FOLIC ACID [Concomitant]
     Dosage: UNK
     Route: 048
     Dates: start: 20080824
  11. METHOTREXATE [Concomitant]
     Dosage: UNK
     Route: 048
     Dates: start: 20080824

REACTIONS (1)
  - SEPSIS [None]
